FAERS Safety Report 24141131 (Version 1)
Quarter: 2024Q3

REPORT INFORMATION
  Report Type: Spontaneous
  Country: DK (occurrence: DK)
  Receive Date: 20240726
  Receipt Date: 20240726
  Transmission Date: 20241016
  Serious: Yes (Hospitalization)
  Sender: TEVA
  Company Number: DK-TEVA-VS-3217319

PATIENT
  Age: 24 Year
  Sex: Female

DRUGS (4)
  1. BUDESONIDE [Suspect]
     Active Substance: BUDESONIDE
     Indication: Asthma
     Route: 055
  2. FLUTICASONE FUROATE [Suspect]
     Active Substance: FLUTICASONE FUROATE
     Indication: Sinusitis
     Route: 045
  3. MOMETASONE FUROATE [Suspect]
     Active Substance: MOMETASONE FUROATE
     Indication: Dermatitis
     Dosage: DOSAGE TEXT: 3-7 TIMES/WEEK ON CHEST, HANDS AND NECK
     Route: 061
  4. ESTROGENS [Concomitant]
     Active Substance: ESTROGENS
     Indication: Contraception
     Dosage: ESTROGEN-CONTAINING CONTRACEPTION
     Route: 048

REACTIONS (2)
  - Adrenal insufficiency [Not Recovered/Not Resolved]
  - Gait inability [Not Recovered/Not Resolved]
